FAERS Safety Report 18446580 (Version 1)
Quarter: 2020Q4

REPORT INFORMATION
  Report Type: Spontaneous
  Country: GB (occurrence: GB)
  Receive Date: 20201030
  Receipt Date: 20201030
  Transmission Date: 20210114
  Serious: Yes (Other)
  Sender: FDA-Public Use
  Company Number: None

PATIENT
  Age: 36 Year
  Sex: Male

DRUGS (1)
  1. BUPRENORPHINE 8MG NALOXONE 2MG SL TAB [Suspect]
     Active Substance: BUPRENORPHINE\NALOXONE
     Indication: DRUG DEPENDENCE
     Dosage: ?          OTHER DOSE:8-2 MG;?
     Route: 060
     Dates: start: 20201021, end: 20201029

REACTIONS (2)
  - Vomiting [None]
  - Overdose [None]

NARRATIVE: CASE EVENT DATE: 20201027
